FAERS Safety Report 16772254 (Version 1)
Quarter: 2019Q3

REPORT INFORMATION
  Report Type: Spontaneous
  Country: JP (occurrence: JP)
  Receive Date: 20190904
  Receipt Date: 20190904
  Transmission Date: 20191005
  Serious: Yes (Hospitalization, Other)
  Sender: FDA-Public Use
  Company Number: JP-PFIZER INC-2019375393

PATIENT
  Age: 70 Year
  Sex: Male

DRUGS (5)
  1. VFEND [Suspect]
     Active Substance: VORICONAZOLE
     Indication: ORAL CANDIDIASIS
     Dosage: 400 MG, DAILY
     Route: 048
     Dates: start: 20190815, end: 20190823
  2. TACROLIMUS. [Suspect]
     Active Substance: TACROLIMUS
     Dosage: 2 MG, DAILY
     Route: 048
     Dates: start: 201907, end: 20190823
  3. PREDONINE [Concomitant]
     Active Substance: PREDNISOLONE
     Dosage: 25 MG, DAILY
     Route: 048
     Dates: start: 201907
  4. BAKTAR [Suspect]
     Active Substance: SULFAMETHOXAZOLE\TRIMETHOPRIM
     Dosage: 1 DF, DAILY
     Route: 048
     Dates: start: 201907, end: 20190823
  5. LIXIANA [Concomitant]
     Active Substance: EDOXABAN TOSYLATE
     Dosage: UNK
     Route: 048

REACTIONS (4)
  - Abdominal discomfort [Recovered/Resolved]
  - Renal impairment [Recovered/Resolved]
  - Drug level increased [Recovered/Resolved]
  - Hyperkalaemia [Recovered/Resolved]

NARRATIVE: CASE EVENT DATE: 20190823
